FAERS Safety Report 17372500 (Version 8)
Quarter: 2021Q3

REPORT INFORMATION
  Report Type: Report from Study
  Country: US (occurrence: US)
  Receive Date: 20200205
  Receipt Date: 20210726
  Transmission Date: 20211014
  Serious: Yes (Other)
  Sender: FDA-Public Use
  Company Number: NVSC2020US023137

PATIENT
  Sex: Male

DRUGS (1)
  1. GLEEVEC [Suspect]
     Active Substance: IMATINIB MESYLATE
     Indication: CHRONIC MYELOID LEUKAEMIA
     Dosage: 400 MG, QD
     Route: 048
     Dates: start: 20171102

REACTIONS (19)
  - Haemorrhage [Not Recovered/Not Resolved]
  - Malignant neoplasm progression [Unknown]
  - Depression [Not Recovered/Not Resolved]
  - Nausea [Not Recovered/Not Resolved]
  - Dizziness [Unknown]
  - Malaise [Not Recovered/Not Resolved]
  - Thrombocytopenia [Not Recovered/Not Resolved]
  - Anxiety [Not Recovered/Not Resolved]
  - Illness [Unknown]
  - Neoplasm malignant [Unknown]
  - Musculoskeletal pain [Not Recovered/Not Resolved]
  - Product distribution issue [Unknown]
  - Oedema [Recovering/Resolving]
  - Vomiting [Not Recovered/Not Resolved]
  - Influenza [Unknown]
  - Chronic myeloid leukaemia [Unknown]
  - Injury [Not Recovered/Not Resolved]
  - Eye disorder [Unknown]
  - Feeling abnormal [Unknown]
